FAERS Safety Report 13345099 (Version 1)
Quarter: 2017Q1

REPORT INFORMATION
  Report Type: Spontaneous
  Country: US (occurrence: US)
  Receive Date: 20170317
  Receipt Date: 20170317
  Transmission Date: 20170428
  Serious: No
  Sender: FDA-Public Use
  Company Number: US-PFIZER INC-2017109035

PATIENT
  Sex: Female

DRUGS (1)
  1. IBRANCE [Suspect]
     Active Substance: PALBOCICLIB
     Dosage: UNK

REACTIONS (6)
  - Dizziness [Unknown]
  - Constipation [Unknown]
  - Full blood count decreased [Unknown]
  - Diarrhoea [Unknown]
  - Insomnia [Unknown]
  - Impaired driving ability [Unknown]
